FAERS Safety Report 7643651-3 (Version None)
Quarter: 2011Q3

REPORT INFORMATION
  Report Type: 
  Country: None (occurrence: None)
  Receive Date: 20110729
  Receipt Date: 20110726
  Transmission Date: 20111222
  Serious: Yes (Death, Hospitalization)
  Sender: FDA-Public Use
  Company Number: PHHY2011BR67375

PATIENT
  Sex: Female

DRUGS (3)
  1. DIOVAN HCT [Suspect]
     Dosage: 160 MG VALS AND 12.5 MG HCT, 1 TABLET A DAY
     Route: 048
     Dates: start: 20100401
  2. DIOVAN [Suspect]
     Indication: HYPERTENSION
     Dosage: 2 DF, 2 TABLETS A DAY
     Route: 048
  3. DIOVAN HCT [Suspect]
     Indication: HYPERTENSION
     Dosage: 160 MG VALS AND 12.5 MG HCT, 1 TABLET A DAY
     Route: 048

REACTIONS (8)
  - CARDIAC ARREST [None]
  - RHEUMATOID ARTHRITIS [None]
  - URINE OUTPUT DECREASED [None]
  - DEHYDRATION [None]
  - RENAL DISORDER [None]
  - HYPOGLYCAEMIA [None]
  - ISCHAEMIA [None]
  - EMPHYSEMA [None]
